FAERS Safety Report 4482256-2 (Version None)
Quarter: 2004Q4

REPORT INFORMATION
  Report Type: 
  Country: None (occurrence: None)
  Receive Date: 20041022
  Receipt Date: 20040326
  Transmission Date: 20050328
  Serious: Yes (Hospitalization)
  Sender: FDA-Public Use
  Company Number: 200411456FR

PATIENT
  Age: 75 Year
  Sex: Female
  Weight: 74 kg

DRUGS (5)
  1. AMAREL [Suspect]
     Indication: DIABETES MELLITUS NON-INSULIN-DEPENDENT
     Route: 048
     Dates: start: 19990101, end: 20040113
  2. GLUCOR [Concomitant]
     Indication: DIABETES MELLITUS NON-INSULIN-DEPENDENT
     Route: 048
  3. LOGIMAX [Concomitant]
     Indication: ESSENTIAL HYPERTENSION
     Route: 048
  4. FUROSEMIDE 20 [Concomitant]
     Route: 048
  5. FELDENE [Concomitant]
     Route: 048
     Dates: end: 20030901

REACTIONS (6)
  - ANAEMIA [None]
  - BLOOD GLUCOSE INCREASED [None]
  - FAECES DISCOLOURED [None]
  - MEAN CELL VOLUME ABNORMAL [None]
  - OVARIAN CYST [None]
  - SERUM FERRITIN DECREASED [None]
